FAERS Safety Report 5896361-7 (Version None)
Quarter: 2008Q3

REPORT INFORMATION
  Report Type: 
  Country: None (occurrence: None)
  Receive Date: 20080924
  Receipt Date: 20071017
  Transmission Date: 20090109
  Serious: Yes (Other)
  Sender: FDA-Public Use
  Company Number: US-ASTRAZENECA-2007UW22663

PATIENT
  Age: 837 Month
  Sex: Female

DRUGS (11)
  1. SEROQUEL [Suspect]
     Indication: INSOMNIA
     Route: 048
     Dates: start: 20050929, end: 20060727
  2. SEROQUEL [Suspect]
     Indication: ARTERIOVENOUS MALFORMATION
     Route: 048
     Dates: start: 20050929, end: 20060727
  3. SEROQUEL [Suspect]
     Route: 048
     Dates: start: 20060727, end: 20061109
  4. SEROQUEL [Suspect]
     Route: 048
     Dates: start: 20060727, end: 20061109
  5. SEROQUEL [Suspect]
     Route: 048
     Dates: start: 20061109, end: 20070510
  6. SEROQUEL [Suspect]
     Route: 048
     Dates: start: 20061109, end: 20070510
  7. ATIVAN [Concomitant]
     Indication: ANXIETY
     Route: 048
  8. CELEXA [Concomitant]
     Indication: MAJOR DEPRESSION
     Route: 048
  9. CELEXA [Concomitant]
     Indication: ANXIETY
     Route: 048
  10. NEURONTIN [Concomitant]
     Route: 048
  11. RISPERDAL [Concomitant]
     Dates: end: 20050101

REACTIONS (1)
  - TARDIVE DYSKINESIA [None]
